FAERS Safety Report 7820509-8 (Version None)
Quarter: 2011Q4

REPORT INFORMATION
  Report Type: 
  Country: None (occurrence: None)
  Receive Date: 20111018
  Receipt Date: 20111003
  Transmission Date: 20120403
  Serious: Yes (Hospitalization)
  Sender: FDA-Public Use
  Company Number: US-BAYER-2011-021175

PATIENT
  Age: 24 Year
  Sex: Female
  Weight: 95.238 kg

DRUGS (13)
  1. YASMIN [Suspect]
     Indication: CONTRACEPTION
     Dosage: UNK
     Route: 048
     Dates: start: 20060701, end: 20070401
  2. YAZ [Suspect]
     Indication: ABDOMINAL PAIN LOWER
  3. PRILOSEC [Concomitant]
     Dosage: 20 MG, QD
     Route: 048
  4. DROSPIRENONE AND ETHINYL ESTRADIOL [Suspect]
     Indication: ABDOMINAL PAIN LOWER
  5. YAZ [Suspect]
     Indication: CONTRACEPTION
     Dosage: UNK
     Route: 048
     Dates: start: 20081101, end: 20090301
  6. DROSPIRENONE AND ETHINYL ESTRADIOL [Suspect]
     Indication: CONTRACEPTION
     Dosage: UNK
     Route: 048
     Dates: start: 20080901, end: 20081101
  7. JUNEL FE 1.5/30 [Concomitant]
     Dosage: UNK
     Dates: start: 20090401, end: 20100201
  8. ERRIN [Concomitant]
     Dosage: UNK
     Dates: start: 20100601, end: 20101101
  9. ZELNORM [Concomitant]
     Dosage: 6 MG, QD
     Route: 048
  10. MICRONOR [Concomitant]
     Dosage: UNK
     Dates: start: 20080101, end: 20100101
  11. CAMILA [Concomitant]
     Dosage: UNK
     Dates: start: 20100301, end: 20100501
  12. YASMIN [Suspect]
     Indication: ABDOMINAL PAIN LOWER
  13. PHENAZOPYRIDINE HCL TAB [Concomitant]
     Dosage: 20 MG, TID
     Route: 048

REACTIONS (3)
  - GALLBLADDER DISORDER [None]
  - PAIN [None]
  - CHOLECYSTITIS ACUTE [None]
